FAERS Safety Report 4529752-7 (Version None)
Quarter: 2004Q4

REPORT INFORMATION
  Report Type: 
  Country: None (occurrence: None)
  Receive Date: 20041126
  Receipt Date: 20040809
  Transmission Date: 20050328
  Serious: No
  Sender: FDA-Public Use
  Company Number: SU-2004-002603

PATIENT
  Sex: Female

DRUGS (4)
  1. BENICAR [Suspect]
     Indication: HYPERTENSION
     Dosage: 40 MG QD PO
     Route: 048
  2. ATACAND [Suspect]
     Indication: HYPERTENSION
     Dates: start: 20030106
  3. ULTRACET [Concomitant]
  4. ZELNORM [Concomitant]

REACTIONS (7)
  - ABDOMINAL PAIN UPPER [None]
  - ANXIETY [None]
  - CHEST WALL PAIN [None]
  - CONDITION AGGRAVATED [None]
  - INSOMNIA [None]
  - MUSCLE SPASMS [None]
  - PAIN OF SKIN [None]
